FAERS Safety Report 18428893 (Version 1)
Quarter: 2020Q4

REPORT INFORMATION
  Report Type: Report from Study
  Country: CA (occurrence: CA)
  Receive Date: 20201026
  Receipt Date: 20201026
  Transmission Date: 20210114
  Serious: Yes (Other)
  Sender: FDA-Public Use
  Company Number: CA-CHIESI-2020CHF05052

PATIENT
  Age: 24 Year
  Sex: Female
  Weight: 37 kg

DRUGS (1)
  1. DEFERIPRONE [Suspect]
     Active Substance: DEFERIPRONE
     Indication: THALASSAEMIA BETA
     Dosage: 3500 MILLIGRAM, QD
     Route: 048
     Dates: start: 201708, end: 20201012

REACTIONS (3)
  - Nausea [Unknown]
  - Product dose omission issue [Unknown]
  - Blood iron increased [Unknown]

NARRATIVE: CASE EVENT DATE: 202010
